FAERS Safety Report 5119062-1 (Version None)
Quarter: 2006Q3

REPORT INFORMATION
  Report Type: 
  Country: None (occurrence: None)
  Receive Date: 20060926
  Receipt Date: 20060919
  Transmission Date: 20061208
  Serious: Yes (Other)
  Sender: FDA-Public Use
  Company Number: HQWYE934320SEP06

PATIENT
  Age: 38 Year
  Sex: Male

DRUGS (5)
  1. EFFEXOR XR [Suspect]
     Indication: DEPRESSION
     Dosage: 150 MG 3X PER 1 DAY, ORAL
     Route: 048
     Dates: start: 20030101
  2. DEPAKOTE [Suspect]
     Indication: MOOD SWINGS
     Dosage: 500 MG 3X PER 1 DAY, ORAL
     Route: 048
  3. LEXAPRO [Suspect]
     Indication: DEPRESSION
     Dosage: 10 MG 3X PER 1 DAY, ORAL
     Route: 048
  4. VISTARIL [Suspect]
     Indication: INSOMNIA
     Dosage: 50 MG X 3-4 HS, ORAL
     Route: 048
  5. ALCOHOL (ETHANOL) [Concomitant]

REACTIONS (4)
  - DRUG EFFECT DECREASED [None]
  - FEELING ABNORMAL [None]
  - IMPAIRED WORK ABILITY [None]
  - MORBID THOUGHTS [None]
